FAERS Safety Report 18156789 (Version 1)
Quarter: 2020Q3

REPORT INFORMATION
  Report Type: Spontaneous
  Country: US (occurrence: US)
  Receive Date: 20200817
  Receipt Date: 20200817
  Transmission Date: 20201103
  Serious: Yes (Other)
  Sender: FDA-Public Use
  Company Number: None

PATIENT
  Sex: Female

DRUGS (1)
  1. FERROUS FUMARATE [Suspect]
     Active Substance: FERROUS FUMARATE

REACTIONS (1)
  - Hypersensitivity [None]
